FAERS Safety Report 6932331-5 (Version None)
Quarter: 2010Q3

REPORT INFORMATION
  Report Type: 
  Country: None (occurrence: None)
  Receive Date: 20100819
  Receipt Date: 20100816
  Transmission Date: 20110219
  Serious: Yes (Other)
  Sender: FDA-Public Use
  Company Number: US-BAYER-201030716NA

PATIENT
  Sex: Female

DRUGS (2)
  1. MIRENA [Suspect]
     Indication: PRODUCT USED FOR UNKNOWN INDICATION
     Dosage: FREQUENCY: CONTINUOUS
     Route: 015
     Dates: start: 20100701
  2. UNKNOWN DRUG [Concomitant]
     Indication: OCCIPITAL NEURALGIA
     Route: 065

REACTIONS (2)
  - BRAIN MASS [None]
  - METRORRHAGIA [None]
